FAERS Safety Report 20545588 (Version 1)
Quarter: 2022Q1

REPORT INFORMATION
  Report Type: Spontaneous
  Country: US (occurrence: None)
  Receive Date: 20220302
  Receipt Date: 20220302
  Transmission Date: 20220423
  Serious: Yes (Hospitalization)
  Sender: FDA-Public Use
  Company Number: None

PATIENT
  Age: 54 Year
  Sex: Female

DRUGS (2)
  1. HUMIRA [Suspect]
     Active Substance: ADALIMUMAB
     Indication: Colitis ulcerative
     Dosage: OTHER QUANTITY : 40MG/0.4ML;?FREQUENCY : EVERY OTHER WEEK;?
     Route: 058
     Dates: start: 2021
  2. HUMIRA [Concomitant]
     Active Substance: ADALIMUMAB

REACTIONS (15)
  - Therapy interrupted [None]
  - COVID-19 [None]
  - Malaise [None]
  - Nasopharyngitis [None]
  - Illness [None]
  - Proctalgia [None]
  - Rectal haemorrhage [None]
  - Colitis [None]
  - Pulmonary thrombosis [None]
  - Haemorrhage [None]
  - Asthenia [None]
  - Transfusion [None]
  - Alopecia [None]
  - Myalgia [None]
  - Urinary tract infection [None]

NARRATIVE: CASE EVENT DATE: 20210927
